FAERS Safety Report 6086184-0 (Version None)
Quarter: 2009Q1

REPORT INFORMATION
  Report Type: 
  Country: None (occurrence: None)
  Receive Date: 20090220
  Receipt Date: 20090211
  Transmission Date: 20090719
  Serious: Yes (Death, Hospitalization)
  Sender: FDA-Public Use
  Company Number: US-BAXTER-2009BH002071

PATIENT
  Age: 62 Year
  Sex: Female
  Weight: 117 kg

DRUGS (2)
  1. DIANEAL [Suspect]
     Indication: PERITONEAL DIALYSIS
     Route: 033
     Dates: start: 20080806, end: 20090128
  2. DIANEAL [Suspect]
     Indication: PERITONEAL DIALYSIS
     Route: 033
     Dates: start: 20080806, end: 20090128

REACTIONS (11)
  - BLOOD POTASSIUM DECREASED [None]
  - DIABETES MELLITUS [None]
  - ERYTHEMA [None]
  - NAUSEA [None]
  - OEDEMA PERIPHERAL [None]
  - PAIN IN EXTREMITY [None]
  - RENAL FAILURE [None]
  - SKIN ULCER [None]
  - SYNCOPE [None]
  - UROSEPSIS [None]
  - VOMITING [None]
